FAERS Safety Report 10249178 (Version 1)
Quarter: 2014Q2

REPORT INFORMATION
  Report Type: Spontaneous
  Country: US (occurrence: None)
  Receive Date: 20140618
  Receipt Date: 20140618
  Transmission Date: 20141212
  Serious: No
  Sender: FDA-Public Use
  Company Number: None

PATIENT
  Sex: Female

DRUGS (1)
  1. GILENYA 0.5MG NOVARTIS [Suspect]
     Dosage: 1 TABLET QD ORAL
     Route: 048

REACTIONS (2)
  - Cough [None]
  - Wheezing [None]
